FAERS Safety Report 6265995-2 (Version None)
Quarter: 2009Q3

REPORT INFORMATION
  Report Type: 
  Country: None (occurrence: None)
  Receive Date: 20090709
  Receipt Date: 20090709
  Transmission Date: 20100115
  Serious: Yes (Hospitalization)
  Sender: FDA-Public Use
  Company Number: None

PATIENT
  Age: 29 Year
  Sex: Female
  Weight: 71.6683 kg

DRUGS (1)
  1. ZIANA [Suspect]
     Indication: ACNE
     Dosage: PEA-SIZE DAILY TOP
     Route: 061
     Dates: start: 20080901, end: 20090701

REACTIONS (1)
  - COLITIS ULCERATIVE [None]
